FAERS Safety Report 5558417-8 (Version None)
Quarter: 2007Q4

REPORT INFORMATION
  Report Type: 
  Country: None (occurrence: None)
  Receive Date: 20071214
  Receipt Date: 20071022
  Transmission Date: 20080405
  Serious: No
  Sender: FDA-Public Use
  Company Number: US-ABBOTT-07P-163-0371591-00

PATIENT
  Sex: Female
  Weight: 72.64 kg

DRUGS (7)
  1. HUMIRA [Suspect]
     Indication: RHEUMATOID ARTHRITIS
     Route: 058
     Dates: start: 20070430, end: 20070601
  2. LEFLUNOMIDE [Concomitant]
     Indication: DRUG USE FOR UNKNOWN INDICATION
     Route: 048
  3. METOPROLOL SUCCINATE [Concomitant]
     Indication: HYPERTENSION
     Route: 048
  4. FLUOXETINE [Concomitant]
     Indication: DEPRESSION
     Route: 048
  5. MODURETIC 5-50 [Concomitant]
     Indication: HYPERTENSION
     Route: 048
  6. BLOOD PRESSURE PILL [Concomitant]
     Indication: HYPERTENSION
     Route: 048
  7. NAPROXEN SODIUM [Concomitant]
     Indication: RHEUMATOID ARTHRITIS
     Route: 048

REACTIONS (7)
  - INJECTION SITE BRUISING [None]
  - INJECTION SITE ERYTHEMA [None]
  - INJECTION SITE NODULE [None]
  - INJECTION SITE PAIN [None]
  - INJECTION SITE PRURITUS [None]
  - INJECTION SITE REACTION [None]
  - INJECTION SITE SWELLING [None]
